FAERS Safety Report 8011574-6 (Version None)
Quarter: 2011Q4

REPORT INFORMATION
  Report Type: 
  Country: None (occurrence: None)
  Receive Date: 20111228
  Receipt Date: 20111228
  Transmission Date: 20120403
  Serious: Yes (Life-Threatening)
  Sender: FDA-Public Use
  Company Number: IT-SANOFI-AVENTIS-2011SA084973

PATIENT
  Age: 73 Year
  Sex: Male

DRUGS (2)
  1. ENOXAPARIN SODIUM [Suspect]
     Indication: IN-STENT ARTERIAL RESTENOSIS
     Dosage: DOSE:6000 ANTI-XA ACTIVITY INTERNATIONAL UNIT(S)
     Route: 058
     Dates: start: 20101116, end: 20101216
  2. VARDENAFIL HYDROCHLORIDE (LEVITRA) [Suspect]
     Route: 048
     Dates: start: 20101216, end: 20101216

REACTIONS (3)
  - CEREBRAL HAEMORRHAGE [None]
  - HEMIPLEGIA [None]
  - GRAND MAL CONVULSION [None]
